FAERS Safety Report 15082489 (Version 4)
Quarter: 2018Q4

REPORT INFORMATION
  Report Type: Spontaneous
  Country: JP (occurrence: JP)
  Receive Date: 20180628
  Receipt Date: 20181119
  Transmission Date: 20190204
  Serious: Yes (Hospitalization, Other)
  Sender: FDA-Public Use
  Company Number: JP-SA-2018SA171616

PATIENT
  Age: 8 Decade
  Sex: Female

DRUGS (2)
  1. KEVZARA [Suspect]
     Active Substance: SARILUMAB
     Indication: RHEUMATOID ARTHRITIS
     Dosage: 200 MG
     Route: 058
     Dates: start: 20180313
  2. KEVZARA [Suspect]
     Active Substance: SARILUMAB
     Dosage: 150 MG
     Route: 058

REACTIONS (2)
  - Femoral neck fracture [Recovering/Resolving]
  - White blood cell count decreased [Recovered/Resolved]

NARRATIVE: CASE EVENT DATE: 20180521
